FAERS Safety Report 10009835 (Version 2)
Quarter: 2014Q1

REPORT INFORMATION
  Report Type: Spontaneous
  Country: US (occurrence: US)
  Receive Date: 20140312
  Receipt Date: 20140312
  Transmission Date: 20141002
  Serious: No
  Sender: FDA-Public Use
  Company Number: US-INCYTE CORPORATION-2012IN002756

PATIENT
  Age: 56 Year
  Sex: Female

DRUGS (7)
  1. JAKAFI [Suspect]
     Indication: MYELOFIBROSIS
     Dosage: NOT SPECIFIED
     Route: 048
     Dates: start: 20120221, end: 2012
  2. JAKAFI [Suspect]
     Dosage: 20 MG, BID
     Route: 048
     Dates: start: 20120920
  3. ALLERGY MEDICATION [Concomitant]
     Dosage: NOT SPECIFIED
  4. AMLODIPINE [Concomitant]
     Dosage: 5 MG, QD
  5. TYLENOL [Concomitant]
     Dosage: NOT SPECIFIED
  6. ACETAMINOPHEN W/HYDROCODONE [Concomitant]
     Dosage: NOT SPECIFIED
  7. DIPHENHYDRAMINE [Concomitant]

REACTIONS (4)
  - Abasia [Unknown]
  - Pain in extremity [Recovering/Resolving]
  - Arthralgia [Unknown]
  - Headache [Unknown]
